FAERS Safety Report 8306582-1 (Version None)
Quarter: 2012Q2

REPORT INFORMATION
  Report Type: 
  Country: None (occurrence: None)
  Receive Date: 20120424
  Receipt Date: 20120416
  Transmission Date: 20120825
  Serious: Yes (Other)
  Sender: FDA-Public Use
  Company Number: US-BAYER-2012-001347

PATIENT
  Age: 26 Year
  Sex: Female
  Weight: 81.633 kg

DRUGS (1)
  1. MIRENA [Suspect]
     Indication: CONTRACEPTION
     Dosage: 20 MCG/24HR, CONT
     Route: 015
     Dates: start: 20101119

REACTIONS (10)
  - VAGINAL HAEMORRHAGE [None]
  - AMENORRHOEA [None]
  - MEDICAL DEVICE COMPLICATION [None]
  - DYSURIA [None]
  - PROCEDURAL HAEMORRHAGE [None]
  - DEVICE DIFFICULT TO USE [None]
  - PAIN [None]
  - MENSTRUAL DISORDER [None]
  - PROCEDURAL PAIN [None]
  - DEVICE DISLOCATION [None]
